FAERS Safety Report 11168462 (Version 1)
Quarter: 2015Q2

REPORT INFORMATION
  Report Type: Spontaneous
  Country: GB (occurrence: GB)
  Receive Date: 20150605
  Receipt Date: 20150605
  Transmission Date: 20150821
  Serious: Yes (Life-Threatening, Hospitalization, Other)
  Sender: FDA-Public Use
  Company Number: GB-GLAXOSMITHKLINE-GB2015075305

PATIENT
  Age: 26 Year
  Sex: Female
  Weight: 57.15 kg

DRUGS (7)
  1. HYOSCINE BUTYLBROMIDE [Concomitant]
     Active Substance: BUTYLSCOPOLAMINE
  2. OMEPRAZOLE. [Concomitant]
     Active Substance: OMEPRAZOLE
     Route: 042
  3. CLARITHROMYCIN. [Suspect]
     Active Substance: CLARITHROMYCIN
     Indication: HELICOBACTER INFECTION
     Route: 048
     Dates: start: 20150516, end: 20150517
  4. PROCHLORPERAZINE. [Concomitant]
     Active Substance: PROCHLORPERAZINE
  5. ONDANSETRON [Suspect]
     Active Substance: ONDANSETRON
     Indication: VOMITING
     Dosage: RECEIVED 2 DOSES 14/05/15, 2 DOSES 15/05/15 + 1 DOSE 16/05/15
     Route: 042
     Dates: start: 20150514, end: 20150516
  6. AMOXICILLIN. [Concomitant]
     Active Substance: AMOXICILLIN
     Route: 048
  7. CYCLIZINE [Concomitant]
     Active Substance: CYCLIZINE

REACTIONS (2)
  - Hypokalaemia [Recovered/Resolved with Sequelae]
  - Cardiac arrest [Recovered/Resolved with Sequelae]

NARRATIVE: CASE EVENT DATE: 20150517
